FAERS Safety Report 8264986-X (Version None)
Quarter: 2012Q2

REPORT INFORMATION
  Report Type: 
  Country: None (occurrence: None)
  Receive Date: 20120406
  Receipt Date: 20120327
  Transmission Date: 20120825
  Serious: Yes (Hospitalization)
  Sender: FDA-Public Use
  Company Number: NL-TEVA-331515ISR

PATIENT
  Sex: Male

DRUGS (2)
  1. CHLORDIAZEPOXIDE [Suspect]
     Indication: HYPERTENSION
     Dosage: 25 MILLIGRAM;
     Dates: start: 20110119, end: 20110122
  2. TAMSULOSIN HCL [Suspect]
     Indication: BENIGN PROSTATIC HYPERPLASIA
     Dates: start: 20110117

REACTIONS (1)
  - ORTHOSTATIC HYPOTENSION [None]
